FAERS Safety Report 4649969-0 (Version None)
Quarter: 2005Q2

REPORT INFORMATION
  Report Type: 
  Country: None (occurrence: None)
  Receive Date: 20050502
  Receipt Date: 20050420
  Transmission Date: 20051028
  Serious: Yes (Hospitalization)
  Sender: FDA-Public Use
  Company Number: JP-MERCK-0504USA03993

PATIENT
  Age: 43 Year
  Sex: Female

DRUGS (4)
  1. PRIMAXIN [Suspect]
     Indication: PNEUMONIA
     Route: 042
     Dates: start: 20050408, end: 20050418
  2. PEPCID [Concomitant]
     Route: 065
     Dates: start: 20050414, end: 20050418
  3. CLARITHROMYCIN [Concomitant]
     Route: 048
     Dates: start: 20050414, end: 20050418
  4. AMINOPHYLLINE [Concomitant]
     Route: 065
     Dates: start: 20050414, end: 20050418

REACTIONS (3)
  - PURPURA [None]
  - PYREXIA [None]
  - RASH ERYTHEMATOUS [None]
